FAERS Safety Report 11910376 (Version 1)
Quarter: 2016Q1

REPORT INFORMATION
  Report Type: Spontaneous
  Country: US (occurrence: None)
  Receive Date: 20160111
  Receipt Date: 20160111
  Transmission Date: 20160526
  Serious: Yes (Life-Threatening)
  Sender: FDA-Public Use
  Company Number: None

PATIENT
  Age: 44 Year
  Sex: Female
  Weight: 73.03 kg

DRUGS (3)
  1. PREDNISONE. [Concomitant]
     Active Substance: PREDNISONE
  2. IMURAN [Concomitant]
     Active Substance: AZATHIOPRINE
  3. RITUXAN [Suspect]
     Active Substance: RITUXIMAB
     Indication: ARTERITIS
     Dosage: 500MG X 2  0, 15 DAYS INTRAVENOUS
     Route: 042
     Dates: start: 20160108

REACTIONS (4)
  - Infusion related reaction [None]
  - Anxiety [None]
  - Dyspnoea [None]
  - Chest discomfort [None]

NARRATIVE: CASE EVENT DATE: 20160108
